FAERS Safety Report 7571487-0 (Version None)
Quarter: 2011Q2

REPORT INFORMATION
  Report Type: 
  Country: None (occurrence: None)
  Receive Date: 20110624
  Receipt Date: 20110620
  Transmission Date: 20111010
  Serious: No
  Sender: FDA-Public Use
  Company Number: US-PFIZER INC-2011136134

PATIENT
  Sex: Female

DRUGS (2)
  1. PREMPRO [Suspect]
     Indication: MOOD SWINGS
  2. PREMPRO [Suspect]
     Indication: HOT FLUSH
     Dosage: 0.3/1.5 MG, DAILY
     Route: 048
     Dates: end: 20110601

REACTIONS (1)
  - DRUG INEFFECTIVE [None]
